FAERS Safety Report 25377361 (Version 1)
Quarter: 2025Q2

REPORT INFORMATION
  Report Type: Spontaneous
  Country: IT (occurrence: IT)
  Receive Date: 20250530
  Receipt Date: 20250530
  Transmission Date: 20250717
  Serious: Yes (Other)
  Sender: CELLTRION
  Company Number: None

PATIENT

DRUGS (1)
  1. YUFLYMA [Suspect]
     Active Substance: ADALIMUMAB-AATY
     Indication: Ankylosing spondylitis
     Dosage: 40 MG, Q2WEEKS
     Route: 058
     Dates: start: 20240507, end: 202410

REACTIONS (6)
  - Scleroderma [Unknown]
  - Haematochezia [Unknown]
  - Mucous stools [Unknown]
  - Pruritus [Unknown]
  - Asthenia [Unknown]
  - Herpes simplex [Unknown]

NARRATIVE: CASE EVENT DATE: 20241001
